FAERS Safety Report 19776308 (Version 1)
Quarter: 2021Q3

REPORT INFORMATION
  Report Type: Report from Study
  Country: CN (occurrence: CN)
  Receive Date: 20210901
  Receipt Date: 20210901
  Transmission Date: 20211014
  Serious: Yes (Other)
  Sender: FDA-Public Use
  Company Number: CN-TAKEDA-2021TUS038652

PATIENT
  Age: 53 Year
  Sex: Female
  Weight: 67 kg

DRUGS (23)
  1. IXAZOMIB [Suspect]
     Active Substance: IXAZOMIB
     Indication: PLASMA CELL MYELOMA
     Dosage: 4 MILLIGRAM, 1/WEEK
     Route: 048
     Dates: start: 20210504
  2. ACICLOVIR [Concomitant]
     Active Substance: ACYCLOVIR
     Indication: PROPHYLAXIS
     Dosage: 0.6 MILLIGRAM, TID
     Route: 048
     Dates: start: 20210602
  3. LEUCOGEN [Concomitant]
     Active Substance: LEUCOGEN
     Indication: PROPHYLAXIS
     Dosage: 20 MILLIGRAM, TID
     Route: 048
     Dates: start: 20210602
  4. MONOAMMONIUM GLYCYRRHIZINATE AND CYSTEINE AND SODIUM CHLORIDE [Concomitant]
     Active Substance: AMMONIUM GLYCYRRHIZATE\CYSTEINE
     Indication: PROPHYLAXIS
     Dosage: 250 MILLILITER, QD
     Route: 042
     Dates: start: 20210602, end: 20210602
  5. MESNA. [Concomitant]
     Active Substance: MESNA
     Indication: PREMEDICATION
     Dosage: 0.4 GRAM, QD
     Route: 042
     Dates: start: 20210811, end: 20210815
  6. LEUCOGEN [Concomitant]
     Active Substance: LEUCOGEN
     Dosage: 20 MILLIGRAM, TID
     Route: 048
     Dates: start: 20210720
  7. ONDANSETRON [Concomitant]
     Active Substance: ONDANSETRON
     Indication: PROPHYLAXIS
     Dosage: 8 MILLIGRAM, QD
     Route: 042
     Dates: start: 20210717, end: 20210717
  8. COMPOUND GLUTAMINE [Concomitant]
     Indication: PROPHYLAXIS
     Dosage: UNK UNK, TID
     Route: 042
     Dates: start: 20210720
  9. DOLASETRON MESYLATE [Concomitant]
     Active Substance: DOLASETRON MESYLATE
     Indication: PROPHYLAXIS
     Dosage: 0.4 GRAM, QD
     Route: 042
     Dates: start: 20210811, end: 20210816
  10. DEXAMETHASONE SODIUM PHOSPHATE. [Concomitant]
     Active Substance: DEXAMETHASONE SODIUM PHOSPHATE
     Indication: PREMEDICATION
     Dosage: 40 MILLIGRAM, QD
     Route: 042
     Dates: start: 20210811, end: 20210815
  11. ZOLEDRONIC ACID [Concomitant]
     Active Substance: ZOLEDRONIC ACID
     Indication: PROPHYLAXIS
     Dosage: 4 MILLIGRAM, QD
     Route: 042
     Dates: start: 20210602, end: 20210602
  12. GLUTATHIONE [Concomitant]
     Active Substance: GLUTATHIONE
     Indication: PROPHYLAXIS
     Dosage: 2.4 GRAM, QD
     Route: 042
     Dates: start: 20210718, end: 20210720
  13. FAMOTIDINE. [Concomitant]
     Active Substance: FAMOTIDINE
     Indication: PROPHYLAXIS
     Dosage: 20 MILLIGRAM, BID
     Route: 042
     Dates: start: 20210602, end: 20210602
  14. ZOLEDRONIC ACID [Concomitant]
     Active Substance: ZOLEDRONIC ACID
     Dosage: 4 MILLIGRAM, QD
     Route: 042
     Dates: start: 20210713, end: 20210713
  15. SIMVASTATIN. [Concomitant]
     Active Substance: SIMVASTATIN
     Indication: PROPHYLAXIS
     Dosage: 20 MILLIGRAM, QD
     Route: 048
     Dates: start: 20210602
  16. MECOBALAMIN [Concomitant]
     Active Substance: METHYLCOBALAMIN
     Indication: PROPHYLAXIS
     Dosage: 0.5 MILLIGRAM, TID
     Route: 048
     Dates: start: 20210602
  17. METOCLOPRAMIDE. [Concomitant]
     Active Substance: METOCLOPRAMIDE
     Indication: PROPHYLAXIS
     Dosage: 10 MILLIGRAM, QD
     Route: 042
     Dates: start: 20210719, end: 20210719
  18. BICYCLOL [Concomitant]
     Active Substance: BICYCLOL
     Indication: PROPHYLAXIS
     Dosage: 50 MILLIGRAM, TID
     Route: 048
     Dates: start: 20210720
  19. FAMOTIDINE. [Concomitant]
     Active Substance: FAMOTIDINE
     Dosage: 80 MILLILITER, QD
     Route: 042
     Dates: start: 20210713, end: 20210717
  20. MONOAMMONIUM GLYCYRRHIZINATE AND CYSTEINE AND SODIUM CHLORIDE [Concomitant]
     Active Substance: AMMONIUM GLYCYRRHIZATE\CYSTEINE
     Dosage: 250 MILLILITER, QD
     Route: 042
     Dates: start: 20210713, end: 20210715
  21. ACICLOVIR [Concomitant]
     Active Substance: ACYCLOVIR
     Dosage: 0.6 UNK, BID
     Route: 048
     Dates: start: 20210720
  22. SODIUM BICARBONATE. [Concomitant]
     Active Substance: SODIUM BICARBONATE
     Indication: PROPHYLAXIS
     Dosage: 20 MILLIGRAM, QD
     Route: 042
     Dates: start: 20210713, end: 20210718
  23. POTASSIUM CHLORIDE. [Concomitant]
     Active Substance: POTASSIUM CHLORIDE
     Indication: PROPHYLAXIS
     Dosage: 15 MILLILITER, QD
     Route: 042
     Dates: start: 20210718, end: 20210720

REACTIONS (5)
  - Aspartate aminotransferase increased [Recovered/Resolved]
  - Platelet count decreased [Recovering/Resolving]
  - Gamma-glutamyltransferase increased [Not Recovered/Not Resolved]
  - Alanine aminotransferase increased [Recovered/Resolved]
  - Myelosuppression [Not Recovered/Not Resolved]

NARRATIVE: CASE EVENT DATE: 20210502
